FAERS Safety Report 6166722-X (Version None)
Quarter: 2009Q2

REPORT INFORMATION
  Report Type: 
  Country: None (occurrence: None)
  Receive Date: 20090424
  Receipt Date: 20090401
  Transmission Date: 20091009
  Serious: Yes (Hospitalization)
  Sender: FDA-Public Use
  Company Number: US-PFIZER INC-2009191340

PATIENT
  Sex: Male

DRUGS (15)
  1. BLINDED *EFAVIRENZ [Suspect]
     Indication: HIV INFECTION
     Dosage: UNK MG, 2X/DAY
     Route: 048
     Dates: start: 20051027
  2. BLINDED *PLACEBO [Suspect]
     Indication: HIV INFECTION
     Dosage: UNK MG, 2X/DAY
     Route: 048
     Dates: start: 20051027
  3. BLINDED MARAVIROC [Suspect]
     Indication: HIV INFECTION
     Dosage: UNK MG, 2X/DAY
     Route: 048
     Dates: start: 20051027
  4. RALTEGRAVIR [Suspect]
     Dosage: 400 MG, 2X/DAY,DAILY
     Route: 048
     Dates: start: 20090115
  5. HYDROCHLOROTHIAZIDE [Concomitant]
     Dosage: 25 MG, 1X/DAY
     Route: 048
     Dates: start: 20050624
  6. LISINOPRIL [Concomitant]
     Dosage: 20MG TAB II  1X/DAY
     Route: 048
     Dates: start: 20050604
  7. NORVASC [Concomitant]
     Dosage: 10 MG, 1X/DAY
     Route: 048
     Dates: start: 20051028
  8. DEPAKOTE [Concomitant]
     Dosage: 500 MG, 2X/DAY
     Dates: start: 20060325
  9. RIFAXIMIN [Concomitant]
     Dosage: 400 MG, 3X/DAY
     Route: 048
     Dates: start: 20070307
  10. PANTOPRAZOLE [Concomitant]
     Dosage: 40 MG, 2X/DAY
     Route: 048
     Dates: start: 20070515
  11. ZYPREXA [Concomitant]
     Dosage: UNK 2.5MG AM PO AND 5MG PM PO.
     Route: 048
     Dates: start: 20070116
  12. VITACAL [Concomitant]
     Dosage: UNK, 1 TAB
     Route: 048
     Dates: start: 20070514
  13. LORAZEPAM [Concomitant]
     Dosage: 0.5 MG, AS NEEDED, Q6H
     Route: 048
     Dates: start: 20070626
  14. PREVACID [Concomitant]
     Dosage: 30 MG, 2X/DAY
     Dates: start: 20070626
  15. METFORMIN [Concomitant]
     Dosage: UNK
     Route: 048
     Dates: start: 20090201

REACTIONS (1)
  - RENAL FAILURE ACUTE [None]
